FAERS Safety Report 18740693 (Version 1)
Quarter: 2021Q1

REPORT INFORMATION
  Report Type: Spontaneous
  Country: US (occurrence: US)
  Receive Date: 20210114
  Receipt Date: 20210114
  Transmission Date: 20210419
  Serious: Yes (Other)
  Sender: FDA-Public Use
  Company Number: None

PATIENT
  Sex: Female

DRUGS (1)
  1. BENZOYL PEROXIDE 5% GEL [Suspect]
     Active Substance: BENZOYL PEROXIDE

REACTIONS (3)
  - Pruritus [None]
  - Erythema [None]
  - Drug ineffective [None]
